FAERS Safety Report 9705580 (Version 1)
Quarter: 2013Q4

REPORT INFORMATION
  Report Type: Spontaneous
  Country: US (occurrence: US)
  Receive Date: 20131122
  Receipt Date: 20131122
  Transmission Date: 20140711
  Serious: No
  Sender: FDA-Public Use
  Company Number: US-GILEAD-2008-0017017

PATIENT
  Age: 72 Year
  Sex: Female

DRUGS (10)
  1. LETAIRIS [Suspect]
     Indication: PULMONARY HYPERTENSION
     Route: 048
  2. ZYRTEC-D [Concomitant]
     Route: 048
  3. ATIVAN [Concomitant]
     Route: 048
  4. ATACAND [Concomitant]
     Route: 048
  5. LASIX [Concomitant]
     Route: 048
  6. SINGULAIR [Concomitant]
     Route: 048
  7. K-DUR [Concomitant]
  8. NASONEX [Concomitant]
  9. SPIRIVA [Concomitant]
  10. PROVENTIL [Concomitant]
     Route: 048

REACTIONS (1)
  - Constipation [None]
